FAERS Safety Report 22021311 (Version 2)
Quarter: 2023Q1

REPORT INFORMATION
  Report Type: Spontaneous
  Country: CH (occurrence: None)
  Receive Date: 20230222
  Receipt Date: 20230224
  Transmission Date: 20230417
  Serious: Yes (Death)
  Sender: FDA-Public Use
  Company Number: CH-ROCHE-3290286

PATIENT
  Age: 76 Year
  Sex: Male

DRUGS (1)
  1. HEMLIBRA [Suspect]
     Active Substance: EMICIZUMAB-KXWH
     Indication: Acquired haemophilia
     Dosage: 4 VIALS OF 150 MG EACH - ALL WITH THE SAME BATCH
     Route: 065

REACTIONS (2)
  - Haemorrhage [Fatal]
  - Multiple organ dysfunction syndrome [Fatal]
